FAERS Safety Report 10525290 (Version 1)
Quarter: 2014Q4

REPORT INFORMATION
  Report Type: Spontaneous
  Country: IN (occurrence: IN)
  Receive Date: 20141017
  Receipt Date: 20141017
  Transmission Date: 20150528
  Serious: Yes (Life-Threatening, Hospitalization, Other)
  Sender: FDA-Public Use
  Company Number: IN-GLAXOSMITHKLINE-IN2014GSK002569

PATIENT
  Age: 65 Year
  Sex: Female

DRUGS (2)
  1. ARIXTRA [Suspect]
     Active Substance: FONDAPARINUX SODIUM
     Indication: THROMBOSIS PROPHYLAXIS
     Dosage: 2.5 MG, QD
     Dates: start: 201409, end: 20140921
  2. ARIXTRA [Suspect]
     Active Substance: FONDAPARINUX SODIUM
     Dosage: 7.5 MG, QD
     Dates: start: 20140921

REACTIONS (2)
  - Haemorrhage intracranial [Not Recovered/Not Resolved]
  - Pulmonary embolism [Not Recovered/Not Resolved]

NARRATIVE: CASE EVENT DATE: 20140920
